FAERS Safety Report 7474625-3 (Version None)
Quarter: 2011Q2

REPORT INFORMATION
  Report Type: 
  Country: None (occurrence: None)
  Receive Date: 20110503
  Receipt Date: 20110418
  Transmission Date: 20111010
  Serious: Yes (Death, Other)
  Sender: FDA-Public Use
  Company Number: FK201100782

PATIENT
  Age: 67 Year
  Sex: Female

DRUGS (1)
  1. HEPARIN SODIUM INJECTION [Suspect]
     Indication: ANTICOAGULATION DRUG LEVEL BELOW THERAPEUTIC
     Dosage: 25000, UNITS PER /24H

REACTIONS (4)
  - BRAIN HERNIATION [None]
  - MYDRIASIS [None]
  - BRAIN OEDEMA [None]
  - CEREBRAL HAEMORRHAGE [None]
